FAERS Safety Report 22351589 (Version 12)
Quarter: 2023Q4

REPORT INFORMATION
  Report Type: Spontaneous
  Country: IN (occurrence: IN)
  Receive Date: 20230522
  Receipt Date: 20231226
  Transmission Date: 20240109
  Serious: Yes (Other)
  Sender: FDA-Public Use
  Company Number: IN-PFIZER INC-PV202300051820

PATIENT
  Age: 51 Year
  Sex: Female
  Weight: 65 kg

DRUGS (15)
  1. PALBOCICLIB [Suspect]
     Active Substance: PALBOCICLIB
     Indication: Breast cancer metastatic
     Dosage: 1-0-0, OD EMPTY STOMACH
     Route: 048
     Dates: start: 20221110
  2. PALBOCICLIB [Suspect]
     Active Substance: PALBOCICLIB
     Dosage: 125 MG, 1X/DAY
     Route: 048
     Dates: start: 20230414
  3. PALBOCICLIB [Suspect]
     Active Substance: PALBOCICLIB
     Dosage: 100 MG
     Route: 048
  4. PALBOCICLIB [Suspect]
     Active Substance: PALBOCICLIB
     Dosage: 0-1-0, 3 WEEKS, 1 WEEK OFF, AFTER FOOD
     Dates: start: 20230525
  5. PALBOCICLIB [Suspect]
     Active Substance: PALBOCICLIB
     Dosage: 1 OD 21/28 DAYS
     Route: 048
     Dates: start: 20230803
  6. LETROZOLE [Concomitant]
     Active Substance: LETROZOLE
     Indication: Breast cancer metastatic
     Dosage: 2.5 MG, 1X/DAY (ONCE A DAY EMPTY STOMACH WITHOUT ANY BREAK)
     Route: 048
     Dates: start: 20221011
  7. ESLO [AMLODIPINE BESILATE] [Concomitant]
     Dosage: UNK
     Dates: start: 20221011
  8. DENOSUMAB [Concomitant]
     Active Substance: DENOSUMAB
     Dosage: 120 MG, MONTHLY (X 4 MORE MONTHS)
  9. LETRONAT [Concomitant]
     Indication: Breast cancer female
     Dosage: 5 MG, 1X/DAY (5MG 1-0-0 PO OD EMPTY STOMACH)
     Route: 048
  10. ONCOLIFE PLUS [Concomitant]
     Dosage: 0-1-0 AFTER FOOD
     Dates: start: 20221011
  11. SUPRACAL [CALCIUM] [Concomitant]
     Dosage: 0-1-0 AFTER FOOD
     Dates: start: 20221011
  12. SUPRACAL [CALCIUM] [Concomitant]
     Dosage: 500 MG, 1X/DAY (FOR 3 WEEKS)
  13. VITAMIN D3 [Concomitant]
     Active Substance: CHOLECALCIFEROL
     Indication: Neoplasm malignant
     Dosage: 1 TAB PER WEEK FOR 8 WEEKS AND THEN MONTHLY)
     Dates: start: 20230810
  14. GOSERELIN [Concomitant]
     Active Substance: GOSERELIN
     Indication: Breast cancer metastatic
     Dosage: 3.6 MG, MONTHLY (X 4 MORE MONTHS)
  15. CALCIUM\CHOLECALCIFEROL [Concomitant]
     Active Substance: CALCIUM\CHOLECALCIFEROL
     Indication: Neoplasm malignant
     Dosage: 0-1-0 AFTER FOOD TO CONTINUE
     Dates: start: 20230810

REACTIONS (19)
  - Neutropenia [Not Recovered/Not Resolved]
  - Gait inability [Unknown]
  - Pain in extremity [Unknown]
  - Joint range of motion decreased [Unknown]
  - Blood pressure systolic increased [Recovering/Resolving]
  - Muscular weakness [Not Recovered/Not Resolved]
  - Neutrophil count decreased [Not Recovered/Not Resolved]
  - Haemoglobin decreased [Recovering/Resolving]
  - White blood cell count decreased [Not Recovered/Not Resolved]
  - Platelet count decreased [Not Recovered/Not Resolved]
  - Red blood cell count decreased [Not Recovered/Not Resolved]
  - Red blood cell sedimentation rate increased [Unknown]
  - Haematocrit decreased [Not Recovered/Not Resolved]
  - Red cell distribution width increased [Unknown]
  - Body mass index increased [Unknown]
  - Respiratory rate increased [Unknown]
  - Arthralgia [Unknown]
  - Heart rate increased [Unknown]
  - Neoplasm progression [Unknown]

NARRATIVE: CASE EVENT DATE: 20230413
